FAERS Safety Report 20333428 (Version 1)
Quarter: 2022Q1

REPORT INFORMATION
  Report Type: Other
  Country: IE (occurrence: None)
  Receive Date: 20220113
  Receipt Date: 20220113
  Transmission Date: 20220423
  Serious: Yes (Hospitalization)
  Sender: FDA-Public Use
  Company Number: IE-Merck Healthcare KGaA-9272526

PATIENT
  Age: 32 Year
  Sex: Male

DRUGS (9)
  1. LEVOTHYROXINE SODIUM [Suspect]
     Active Substance: LEVOTHYROXINE SODIUM
     Indication: Muscle mass
  2. TRENBOLONE [Concomitant]
     Active Substance: TRENBOLONE
     Indication: Product used for unknown indication
  3. STANOZOLOL [Concomitant]
     Active Substance: STANOZOLOL
     Indication: Product used for unknown indication
  4. OXANDROLONE [Concomitant]
     Active Substance: OXANDROLONE
     Indication: Product used for unknown indication
  5. MESTEROLONE [Concomitant]
     Active Substance: MESTEROLONE
     Indication: Product used for unknown indication
  6. FLUOXYMESTERONE [Concomitant]
     Active Substance: FLUOXYMESTERONE
     Indication: Product used for unknown indication
  7. DROMOSTANOLONE [Concomitant]
     Active Substance: DROMOSTANOLONE
     Indication: Product used for unknown indication
  8. CLENBUTEROL [Concomitant]
     Active Substance: CLENBUTEROL
     Indication: Product used for unknown indication
  9. LETROZOLE [Concomitant]
     Active Substance: LETROZOLE
     Indication: Product used for unknown indication

REACTIONS (4)
  - Hypokalaemia [Recovered/Resolved]
  - Thyrotoxic periodic paralysis [Recovered/Resolved]
  - Hyperthyroidism [Recovered/Resolved]
  - Intentional product misuse [Recovered/Resolved]
